FAERS Safety Report 5801996-3 (Version None)
Quarter: 2008Q3

REPORT INFORMATION
  Report Type: 
  Country: None (occurrence: None)
  Receive Date: 20080702
  Receipt Date: 20080617
  Transmission Date: 20090109
  Serious: Yes (Hospitalization)
  Sender: FDA-Public Use
  Company Number: DSA_32041_2008

PATIENT
  Sex: Female

DRUGS (2)
  1. LORAZEPAM [Suspect]
     Dosage: (20 MG 1X ORAL)
     Route: 048
     Dates: start: 20080616, end: 20080616
  2. MIRTAZAPINE [Suspect]
     Dosage: (1470 MG 1X ORAL)
     Route: 048
     Dates: start: 20080616, end: 20080616

REACTIONS (4)
  - AGITATION [None]
  - MULTIPLE DRUG OVERDOSE INTENTIONAL [None]
  - SUICIDE ATTEMPT [None]
  - TACHYCARDIA [None]
